FAERS Safety Report 9645262 (Version 3)
Quarter: 2013Q4

REPORT INFORMATION
  Report Type: Spontaneous
  Country: TW (occurrence: TW)
  Receive Date: 20131025
  Receipt Date: 20131203
  Transmission Date: 20140711
  Serious: Yes (Hospitalization, Other)
  Sender: FDA-Public Use
  Company Number: TW-AMGEN-TWNSP2013075484

PATIENT
  Age: 56 Year
  Sex: Male

DRUGS (7)
  1. ENBREL [Suspect]
     Indication: PSORIATIC ARTHROPATHY
     Dosage: 25 MG, 2X/WEEK
     Route: 058
     Dates: start: 20111228, end: 20131014
  2. PRAVASTATIN [Concomitant]
     Dosage: 40 MG, 1X/DAY AT BEDTIME
  3. AMLODIPINE [Concomitant]
     Dosage: 1 DF, 1X/DAY
  4. CLOBETASOL 0.05% [Concomitant]
     Dosage: 25 G, 3X/DAY
  5. PREDNISOLONE [Concomitant]
     Dosage: 5 MG, 1X/DAY
  6. ZOPICLONE [Concomitant]
     Dosage: 7.5 MG, 1X/DAY AT BED TIME
  7. VALSARTAN [Concomitant]
     Dosage: 1 DF, QD

REACTIONS (2)
  - Anal squamous cell carcinoma [Not Recovered/Not Resolved]
  - Rectal polyp [Unknown]
